FAERS Safety Report 9438260 (Version 1)
Quarter: 2013Q3

REPORT INFORMATION
  Report Type: Spontaneous
  Country: US (occurrence: US)
  Receive Date: 20130802
  Receipt Date: 20130802
  Transmission Date: 20140515
  Serious: No
  Sender: FDA-Public Use
  Company Number: US-BRISTOL-MYERS SQUIBB COMPANY-17096207

PATIENT
  Age: 71 Year
  Sex: Female
  Weight: 66.66 kg

DRUGS (11)
  1. WARFARIN SODIUM [Suspect]
     Indication: ATRIAL FIBRILLATION
     Dosage: 1DF: 3MG 4D/WK,4MG 3D/WK:LOT#2D7181103?LOT#5MG:2F69879A
     Dates: start: 201206
  2. COUMADIN [Suspect]
     Dosage: PRESENT DOSE: 4QOD AND 5 QOD
  3. ATIVAN [Concomitant]
  4. MAPROTILINE [Concomitant]
     Indication: DEPRESSION
     Dosage: BID/TID
  5. HYZAAR [Concomitant]
     Dosage: FOR 3-4 YRS
  6. TOPROL XL [Concomitant]
     Dosage: FOR 3-4 YRS
  7. VITAMIN D3 [Concomitant]
     Dosage: 1DF: 1000U
  8. SYNTHROID [Concomitant]
     Dosage: 1/2 TAB DAILY
  9. NEXIUM [Concomitant]
  10. SENOKOT [Concomitant]
  11. ZOCOR [Concomitant]

REACTIONS (3)
  - International normalised ratio decreased [Recovered/Resolved]
  - Weight decreased [Unknown]
  - Nail bed bleeding [Unknown]
